FAERS Safety Report 14686955 (Version 1)
Quarter: 2018Q1

REPORT INFORMATION
  Report Type: Spontaneous
  Country: US (occurrence: US)
  Receive Date: 20180327
  Receipt Date: 20180327
  Transmission Date: 20180509
  Serious: No
  Sender: FDA-Public Use
  Company Number: US-MYLANLABS-2018M1014131

PATIENT
  Sex: Female
  Weight: 51 kg

DRUGS (1)
  1. CLONAZEPAM. [Suspect]
     Active Substance: CLONAZEPAM
     Indication: TREMOR
     Dosage: 2 MG, TID
     Route: 048

REACTIONS (2)
  - Drug screen negative [Unknown]
  - Tremor [Not Recovered/Not Resolved]
